FAERS Safety Report 21570181 (Version 1)
Quarter: 2022Q4

REPORT INFORMATION
  Report Type: Other
  Country: DE (occurrence: None)
  Receive Date: 20221109
  Receipt Date: 20221109
  Transmission Date: 20230113
  Serious: No
  Sender: FDA-Public Use
  Company Number: DE-ROCHE-2148280

PATIENT
  Age: 20 Year
  Sex: Female

DRUGS (2)
  1. OCREVUS [Suspect]
     Active Substance: OCRELIZUMAB
     Indication: Relapsing-remitting multiple sclerosis
     Route: 042
     Dates: start: 20180530
  2. OCREVUS [Suspect]
     Active Substance: OCRELIZUMAB
     Route: 042
     Dates: start: 20180613

REACTIONS (5)
  - Fatigue [Recovered/Resolved]
  - Asthenia [Recovered/Resolved]
  - Nasal congestion [Recovered/Resolved]
  - COVID-19 [Recovered/Resolved]
  - Apathy [Recovered/Resolved]

NARRATIVE: CASE EVENT DATE: 20180530
